FAERS Safety Report 5732913-2 (Version None)
Quarter: 2008Q2

REPORT INFORMATION
  Report Type: 
  Country: None (occurrence: None)
  Receive Date: 20080509
  Receipt Date: 20080311
  Transmission Date: 20081010
  Serious: No
  Sender: FDA-Public Use
  Company Number: A0714640A

PATIENT
  Age: 78 Year
  Sex: Female

DRUGS (2)
  1. COREG CR [Suspect]
     Indication: HYPERTENSION
     Dosage: 40MG PER DAY
     Route: 048
     Dates: start: 20080218
  2. NO CONCURRENT MEDICATION [Concomitant]

REACTIONS (4)
  - BURNING SENSATION [None]
  - CYSTITIS [None]
  - DIZZINESS [None]
  - POLLAKIURIA [None]
